FAERS Safety Report 12158021 (Version 1)
Quarter: 2016Q1

REPORT INFORMATION
  Report Type: Spontaneous
  Country: US (occurrence: US)
  Receive Date: 20160308
  Receipt Date: 20160308
  Transmission Date: 20160526
  Serious: No
  Sender: FDA-Public Use
  Company Number: US-JNJFOC-20141114130

PATIENT
  Age: 75 Year
  Sex: Female
  Weight: 64 kg

DRUGS (15)
  1. IMBRUVICA [Suspect]
     Active Substance: IBRUTINIB
     Indication: CHRONIC LYMPHOCYTIC LEUKAEMIA
     Route: 048
     Dates: start: 20140820, end: 20150101
  2. HYDROCODONE BITARTRATE AND ACETAMINOPHEN [Concomitant]
     Active Substance: ACETAMINOPHEN\HYDROCODONE BITARTRATE
     Dosage: ONE TAB PRN
  3. OTC DIET SUPPLEMENTS [Concomitant]
  4. TYLENOL [Concomitant]
     Active Substance: ACETAMINOPHEN
     Dosage: QHS, PRN
  5. SINGULAIR [Concomitant]
     Active Substance: MONTELUKAST SODIUM
  6. VITAMIN D [Concomitant]
     Active Substance: CHOLECALCIFEROL
  7. IMBRUVICA [Suspect]
     Active Substance: IBRUTINIB
     Indication: CHRONIC LYMPHOCYTIC LEUKAEMIA
     Route: 048
     Dates: start: 20150102
  8. MULTIVITAMINS [Concomitant]
     Active Substance: VITAMINS
  9. HYDROCHLOROTHIAZIDE. [Concomitant]
     Active Substance: HYDROCHLOROTHIAZIDE
  10. ZANTAC [Concomitant]
     Active Substance: RANITIDINE HYDROCHLORIDE
     Dosage: QHS
  11. ALLEGRA D 12 [Concomitant]
     Dosage: QAM, PRN
  12. IMODIUM [Concomitant]
     Active Substance: LOPERAMIDE HYDROCHLORIDE
  13. BAYER ASPIRIN [Concomitant]
     Active Substance: ASPIRIN
     Dosage: QHS
  14. CALCIUM [Concomitant]
     Active Substance: CALCIUM
  15. CELEBREX [Concomitant]
     Active Substance: CELECOXIB

REACTIONS (6)
  - Leukocytosis [Not Recovered/Not Resolved]
  - Decreased appetite [Unknown]
  - Sciatica [Unknown]
  - Stomatitis [Not Recovered/Not Resolved]
  - Dysphagia [Unknown]
  - Urinary tract infection [Unknown]

NARRATIVE: CASE EVENT DATE: 20140910
